FAERS Safety Report 19131939 (Version 1)
Quarter: 2021Q2

REPORT INFORMATION
  Report Type: Spontaneous
  Country: US (occurrence: US)
  Receive Date: 20210414
  Receipt Date: 20210414
  Transmission Date: 20210717
  Serious: Yes (Hospitalization, Other)
  Sender: FDA-Public Use
  Company Number: US-SA-2021SA120798

PATIENT
  Age: 67 Year
  Sex: Female

DRUGS (2)
  1. NINLARO [Concomitant]
     Active Substance: IXAZOMIB CITRATE
     Dosage: ONCE A WEEK FOR 3 WEEKS ON AND 1 WEEK OFF
     Route: 048
  2. CEREZYME [Suspect]
     Active Substance: IMIGLUCERASE
     Indication: GAUCHER^S DISEASE
     Dosage: 3200 U, QOW
     Route: 042
     Dates: start: 20200615

REACTIONS (1)
  - Haemoglobin decreased [Unknown]

NARRATIVE: CASE EVENT DATE: 202103
